FAERS Safety Report 8852438 (Version 1)
Quarter: 2012Q4

REPORT INFORMATION
  Report Type: Spontaneous
  Country: US (occurrence: None)
  Receive Date: 20121017
  Receipt Date: 20121017
  Transmission Date: 20130627
  Serious: Yes (Other)
  Sender: FDA-Public Use
  Company Number: COL_12270_2012

PATIENT
  Age: 18 Month
  Sex: Female

DRUGS (1)
  1. COLGATE TOOTHPASTE [Suspect]
     Indication: DENTAL CARIES
     Dosage: (DOT SIZE AMOUNT)
     Route: 048
     Dates: start: 2012, end: 2012

REACTIONS (1)
  - Vomiting [None]
